FAERS Safety Report 21244598 (Version 1)
Quarter: 2022Q3

REPORT INFORMATION
  Report Type: Spontaneous
  Country: DK (occurrence: DK)
  Receive Date: 20220823
  Receipt Date: 20220823
  Transmission Date: 20221027
  Serious: Yes (Hospitalization, Other)
  Sender: FDA-Public Use
  Company Number: None

PATIENT

DRUGS (1)
  1. ZEJULA [Suspect]
     Active Substance: NIRAPARIB
     Indication: Ovarian cancer metastatic
     Dosage: LATEST TREATMENT SERIE (3RD SERIE) WAS RECEIVED ON 30JUN2022. STRENGTH: 100 MG
     Route: 048
     Dates: start: 20220506

REACTIONS (3)
  - Thrombocytopenia [Not Recovered/Not Resolved]
  - Vaginal haemorrhage [Not Recovered/Not Resolved]
  - Vaginal ulceration [Not Recovered/Not Resolved]

NARRATIVE: CASE EVENT DATE: 20220701
